FAERS Safety Report 6388052-3 (Version None)
Quarter: 2009Q4

REPORT INFORMATION
  Report Type: 
  Country: None (occurrence: None)
  Receive Date: 20091001
  Receipt Date: 20091001
  Transmission Date: 20100525
  Serious: Yes (Life-Threatening, Other)
  Sender: FDA-Public Use
  Company Number: None

PATIENT
  Weight: 49.4421 kg

DRUGS (1)
  1. ENBREL [Suspect]

REACTIONS (6)
  - CHEST DISCOMFORT [None]
  - DYSPNOEA [None]
  - EYE IRRITATION [None]
  - EYELID OEDEMA [None]
  - OEDEMA MOUTH [None]
  - RASH GENERALISED [None]
